FAERS Safety Report 10688518 (Version 2)
Quarter: 2015Q1

REPORT INFORMATION
  Report Type: Spontaneous
  Country: US (occurrence: US)
  Receive Date: 20150102
  Receipt Date: 20150224
  Transmission Date: 20150720
  Serious: Yes (Death, Life-Threatening, Hospitalization)
  Sender: FDA-Public Use
  Company Number: US-CELGENE-USA-2014125095

PATIENT
  Age: 70 Year
  Sex: Male

DRUGS (2)
  1. REVLIMID [Suspect]
     Active Substance: LENALIDOMIDE
     Indication: ANAEMIA OF MALIGNANT DISEASE
     Dosage: 10 MILLIGRAM
     Route: 048
     Dates: start: 20141104, end: 20141122
  2. PREDNISONE. [Concomitant]
     Active Substance: PREDNISONE
     Indication: MYELOFIBROSIS
     Route: 065
     Dates: start: 20141106, end: 20141122

REACTIONS (2)
  - Gastrointestinal infection [Fatal]
  - Intestinal perforation [Fatal]

NARRATIVE: CASE EVENT DATE: 2014
